FAERS Safety Report 4335342-1 (Version None)
Quarter: 2004Q2

REPORT INFORMATION
  Report Type: 
  Country: None (occurrence: None)
  Receive Date: 20040409
  Receipt Date: 20030108
  Transmission Date: 20050107
  Serious: Yes (Hospitalization)
  Sender: FDA-Public Use
  Company Number: PHBS2003JP00626

PATIENT
  Age: 83 Year
  Sex: Male
  Weight: 53 kg

DRUGS (9)
  1. HALOPERIDOL [Concomitant]
     Dosage: 2.25 MG/DAY
  2. TIAPRIDE HYDROCHLORIDE [Concomitant]
     Dosage: 200 MG/DAY
  3. BIPERIDEN HYDROCHLORIDE TAB [Concomitant]
     Dosage: 3 MG/DAY
  4. RILMAZAFONE [Concomitant]
     Dosage: 4 MG/DAY
  5. VOLTAREN [Suspect]
     Indication: PYREXIA
     Dosage: 25 MG, TID
     Route: 048
     Dates: start: 20010527, end: 20010527
  6. LITHIUM CARBONATE [Suspect]
     Indication: BIPOLAR I DISORDER
     Dosage: 600 MG/DAY
     Dates: start: 20010509, end: 20010515
  7. LITHIUM CARBONATE [Suspect]
     Dosage: 800 MG/DAY
     Dates: start: 20010516, end: 20010522
  8. LITHIUM CARBONATE [Suspect]
     Dosage: 200 MG/DAY
     Dates: start: 20010417, end: 20010501
  9. LITHIUM CARBONATE [Suspect]
     Dosage: 400 MG/DAY
     Dates: start: 20010502, end: 20010508

REACTIONS (14)
  - ANOREXIA [None]
  - C-REACTIVE PROTEIN INCREASED [None]
  - DEPRESSED LEVEL OF CONSCIOUSNESS [None]
  - DRUG INTERACTION [None]
  - DRUG TOXICITY [None]
  - DYSPNOEA [None]
  - INFLAMMATION [None]
  - LOSS OF CONSCIOUSNESS [None]
  - NEUTROPHIL COUNT INCREASED [None]
  - PYREXIA [None]
  - RED BLOOD CELL SEDIMENTATION RATE INCREASED [None]
  - RESPIRATORY DEPRESSION [None]
  - SHIFT TO THE LEFT [None]
  - WHITE BLOOD CELL COUNT INCREASED [None]
